FAERS Safety Report 7422530-0 (Version None)
Quarter: 2011Q2

REPORT INFORMATION
  Report Type: 
  Country: None (occurrence: None)
  Receive Date: 20110419
  Receipt Date: 20110411
  Transmission Date: 20111010
  Serious: No
  Sender: FDA-Public Use
  Company Number: US-BIOGENIDEC-2011BI013760

PATIENT
  Sex: Female

DRUGS (3)
  1. AVONEX [Suspect]
     Route: 030
     Dates: end: 20010707
  2. AVONEX [Suspect]
     Indication: MULTIPLE SCLEROSIS
     Route: 030
  3. AVONEX [Suspect]
     Route: 030
     Dates: start: 20030801, end: 20050201

REACTIONS (5)
  - DYSARTHRIA [None]
  - MEMORY IMPAIRMENT [None]
  - LIVER INJURY [None]
  - HYPOAESTHESIA [None]
  - HEADACHE [None]
